FAERS Safety Report 8362491 (Version 2)
Quarter: 2013Q3

REPORT INFORMATION
  Report Type: Spontaneous
  Country: FR (occurrence: FR)
  Receive Date: 20120130
  Receipt Date: 20130809
  Transmission Date: 20140515
  Serious: Yes (Hospitalization)
  Sender: FDA-Public Use
  Company Number: FR-PFIZER INC-2011118059

PATIENT
  Age: 64 Year
  Sex: Female

DRUGS (9)
  1. TAZOCILLINE [Suspect]
     Indication: LUNG ABSCESS
     Dosage: 4 G, 3X/DAY
     Route: 042
     Dates: start: 20110304, end: 20110406
  2. TARGOCID [Suspect]
     Indication: LUNG ABSCESS
     Dosage: 400 MG, 2X/DAY
     Route: 042
     Dates: start: 20110304, end: 20110305
  3. TARGOCID [Suspect]
     Dosage: 400 MG DAILY
     Route: 042
     Dates: start: 20110406, end: 20110407
  4. TARGOCID [Suspect]
     Dosage: 100 MG, UNK
     Route: 058
     Dates: start: 201202
  5. CIFLOX [Suspect]
     Indication: LUNG ABSCESS
     Dosage: 500 MG, 2X/DAY
     Route: 048
     Dates: start: 20110330, end: 20110403
  6. CELLCEPT [Concomitant]
     Dosage: 500 MG, 2X/DAY
     Dates: start: 2000
  7. OFLOCET [Concomitant]
     Dosage: 200 MG, 2X/DAY
  8. ROCEPHINE [Concomitant]
     Dosage: 1 G DAILY
     Route: 042
  9. FLAGYL ^AVENTIS^ [Concomitant]
     Dosage: 500 MG, 3X/DAY
     Route: 048

REACTIONS (2)
  - Drug reaction with eosinophilia and systemic symptoms [Recovered/Resolved]
  - Skin test positive [Unknown]
